FAERS Safety Report 4641097-3 (Version None)
Quarter: 2005Q2

REPORT INFORMATION
  Report Type: 
  Country: None (occurrence: None)
  Receive Date: 20050419
  Receipt Date: 20050419
  Transmission Date: 20051028
  Serious: Yes (Other)
  Sender: FDA-Public Use
  Company Number: None

PATIENT
  Sex: Male
  Weight: 81.8 kg

DRUGS (6)
  1. FLUOROURACIL [Suspect]
     Dosage: 400 MG/M2 IV BOLUS INJECTION POST IV ADM , THEN 2400 MG/M2 CONINTUOUS IV INF OVER 46-48 HRS
     Route: 040
     Dates: start: 20040708
  2. LEUCOVORIN CALCIUM [Suspect]
     Dosage: 400 MG/M2 IV OVER 2HRS POST OXAL ADM
     Route: 042
     Dates: start: 20040708
  3. OXALIPLATIN [Suspect]
     Dosage: 85 MG/M2 IV INFUSION OVER 120 MIN
     Route: 042
     Dates: start: 20040708
  4. HYDROCHLOROTHIAZIDE [Concomitant]
  5. ATENOLOL [Concomitant]
  6. COUMADIN [Concomitant]

REACTIONS (4)
  - ASTHENIA [None]
  - DIZZINESS [None]
  - HAEMATOCHEZIA [None]
  - LOSS OF CONSCIOUSNESS [None]
